FAERS Safety Report 22275569 (Version 1)
Quarter: 2023Q2

REPORT INFORMATION
  Report Type: Spontaneous
  Country: US (occurrence: US)
  Receive Date: 20230502
  Receipt Date: 20230502
  Transmission Date: 20230722
  Serious: No
  Sender: FDA-Public Use
  Company Number: US-SANOFI-01592647

PATIENT
  Sex: Female

DRUGS (1)
  1. DUPIXENT [Suspect]
     Active Substance: DUPILUMAB
     Indication: Product used for unknown indication
     Dosage: UNK
     Dates: start: 20230419

REACTIONS (4)
  - Pain [Unknown]
  - Pyrexia [Unknown]
  - Chills [Unknown]
  - Tinea infection [Unknown]

NARRATIVE: CASE EVENT DATE: 20230421
